FAERS Safety Report 7271449-7 (Version None)
Quarter: 2011Q1

REPORT INFORMATION
  Report Type: 
  Country: None (occurrence: None)
  Receive Date: 20110203
  Receipt Date: 20071102
  Transmission Date: 20110831
  Serious: No
  Sender: FDA-Public Use
  Company Number: 2007BI023665

PATIENT
  Age: 53 Year
  Sex: Female

DRUGS (1)
  1. TYSABRI [Suspect]
     Indication: MULTIPLE SCLEROSIS
     Route: 042
     Dates: start: 20070928, end: 20100101

REACTIONS (5)
  - COGNITIVE DISORDER [None]
  - BAND SENSATION [None]
  - BURNING SENSATION [None]
  - MUSCULAR WEAKNESS [None]
  - FATIGUE [None]
